FAERS Safety Report 10470825 (Version 3)
Quarter: 2015Q3

REPORT INFORMATION
  Report Type: Report from Study
  Country: US (occurrence: US)
  Receive Date: 20140923
  Receipt Date: 20150818
  Transmission Date: 20151125
  Serious: No
  Sender: FDA-Public Use
  Company Number: US-GILEAD-2014-0116007

PATIENT
  Age: 70 Year
  Sex: Female

DRUGS (17)
  1. LOVASTATIN. [Concomitant]
     Active Substance: LOVASTATIN
  2. CITRACAL PLUS D [Concomitant]
  3. SILDENAFIL. [Concomitant]
     Active Substance: SILDENAFIL
  4. XIFAXAN [Concomitant]
     Active Substance: RIFAXIMIN
  5. ATIVAN [Concomitant]
     Active Substance: LORAZEPAM
  6. METOPROLOL [Concomitant]
     Active Substance: METOPROLOL
  7. NEXIUM [Concomitant]
     Active Substance: ESOMEPRAZOLE MAGNESIUM
  8. AMBRISENTAN [Suspect]
     Active Substance: AMBRISENTAN
     Indication: PORTOPULMONARY HYPERTENSION
     Dosage: 5 MG, QD
     Dates: start: 20140903
  9. TYVASO [Concomitant]
     Active Substance: TREPROSTINIL
  10. POTASSIUM [Concomitant]
     Active Substance: POTASSIUM
  11. FOLIC ACID. [Concomitant]
     Active Substance: FOLIC ACID
  12. SPIRONOLACTONE. [Concomitant]
     Active Substance: SPIRONOLACTONE
  13. FUROSEMIDE. [Concomitant]
     Active Substance: FUROSEMIDE
  14. FERROUS SULFATE [Concomitant]
     Active Substance: FERROUS SULFATE\FERROUS SULFATE, DRIED
  15. SYNTHROID [Concomitant]
     Active Substance: LEVOTHYROXINE SODIUM
  16. METFORMIN [Concomitant]
     Active Substance: METFORMIN HYDROCHLORIDE
  17. GLIPIZIDE. [Concomitant]
     Active Substance: GLIPIZIDE

REACTIONS (2)
  - Headache [Recovered/Resolved]
  - Overdose [Recovered/Resolved]

NARRATIVE: CASE EVENT DATE: 20140903
